FAERS Safety Report 7671287-7 (Version None)
Quarter: 2011Q3

REPORT INFORMATION
  Report Type: 
  Country: None (occurrence: None)
  Receive Date: 20110808
  Receipt Date: 20110808
  Transmission Date: 20111222
  Serious: Yes (Other)
  Sender: FDA-Public Use
  Company Number: None

PATIENT
  Sex: Female
  Weight: 51.7101 kg

DRUGS (1)
  1. TEGRETOL [Suspect]
     Dosage: #2AM/3PM BID ORAL
     Route: 048
     Dates: start: 20080101

REACTIONS (1)
  - PRODUCT SUBSTITUTION ISSUE [None]
